FAERS Safety Report 5634746-4 (Version None)
Quarter: 2008Q1

REPORT INFORMATION
  Report Type: 
  Country: None (occurrence: None)
  Receive Date: 20080221
  Receipt Date: 20080221
  Transmission Date: 20080703
  Serious: No
  Sender: FDA-Public Use
  Company Number: None

PATIENT
  Age: 67 Year
  Sex: Male
  Weight: 127 kg

DRUGS (1)
  1. ROSUVASTATIN [Suspect]
     Indication: HYPERCHOLESTEROLAEMIA
     Dosage: 20MG HS PO
     Route: 048
     Dates: start: 20050308, end: 20080207

REACTIONS (2)
  - GLOMERULONEPHRITIS MEMBRANOUS [None]
  - RENAL FAILURE CHRONIC [None]
